FAERS Safety Report 6880087-7 (Version None)
Quarter: 2010Q3

REPORT INFORMATION
  Report Type: 
  Country: None (occurrence: None)
  Receive Date: 20100728
  Receipt Date: 20090817
  Transmission Date: 20110219
  Serious: No
  Sender: FDA-Public Use
  Company Number: US-BRISTOL-MYERS SQUIBB COMPANY-14743439

PATIENT
  Age: 61 Year
  Sex: Male
  Weight: 91 kg

DRUGS (3)
  1. SPRYCEL [Suspect]
     Indication: CHRONIC MYELOID LEUKAEMIA
     Dosage: DURATION:3 YEARS
  2. FLOMAX [Concomitant]
  3. ZETIA [Concomitant]

REACTIONS (3)
  - HYPOAESTHESIA [None]
  - PAIN [None]
  - PARAESTHESIA [None]
